FAERS Safety Report 4741476-X (Version None)
Quarter: 2005Q3

REPORT INFORMATION
  Report Type: 
  Country: None (occurrence: None)
  Receive Date: 20050808
  Receipt Date: 20050726
  Transmission Date: 20060218
  Serious: Yes (Other)
  Sender: FDA-Public Use
  Company Number: HQWYE682903AUG05

PATIENT
  Age: 83 Year
  Sex: Male

DRUGS (6)
  1. LEVAQUIN [Suspect]
     Indication: PNEUMONIA
     Dosage: 500 MG DAILY, INTRAVENOUS
     Route: 042
     Dates: start: 20041124
  2. ENALAPRILAT [Concomitant]
  3. ASPIRIN [Concomitant]
  4. RANITIDINE HCL [Concomitant]
  5. FUROSEMIDE [Concomitant]
  6. HEPARIN [Concomitant]

REACTIONS (3)
  - BLOOD ALBUMIN DECREASED [None]
  - BLOOD ALKALINE PHOSPHATASE INCREASED [None]
  - ELECTROCARDIOGRAM QT PROLONGED [None]
